FAERS Safety Report 7607354-3 (Version None)
Quarter: 2011Q3

REPORT INFORMATION
  Report Type: 
  Country: None (occurrence: None)
  Receive Date: 20110713
  Receipt Date: 20110707
  Transmission Date: 20111222
  Serious: Yes (Life-Threatening, Hospitalization)
  Sender: FDA-Public Use
  Company Number: US-CELGENEUS-163-21880-11071092

PATIENT
  Age: 65 Year
  Sex: Female
  Weight: 90.8 kg

DRUGS (29)
  1. VELCADE [Suspect]
     Indication: MULTIPLE MYELOMA
     Dosage: 1.9 MILLIGRAM
     Route: 051
     Dates: start: 20101212, end: 20110602
  2. BETASERON [Concomitant]
     Route: 065
  3. PRAVASTATIN [Concomitant]
     Route: 065
  4. GLIMEPRIMIDE [Concomitant]
     Route: 065
  5. CARDIZEM [Concomitant]
     Indication: HEART RATE
     Route: 048
  6. POTASSIUM PHOSPHATES [Concomitant]
     Dosage: 30 MICROMOLE
     Route: 065
     Dates: start: 20100610
  7. MARINOL [Concomitant]
     Route: 065
  8. ACYCLOVIR [Concomitant]
     Route: 065
  9. WARFARIN SODIUM [Concomitant]
     Route: 065
  10. METFORMIN HCL [Concomitant]
     Route: 065
  11. FENTANYL [Concomitant]
     Route: 065
  12. COREG [Concomitant]
     Route: 065
  13. VITAMIN D [Concomitant]
     Route: 065
  14. MAGNESIUM SULFATE [Concomitant]
     Indication: HYPOMAGNESAEMIA
     Dosage: 2 GRAM
     Route: 051
     Dates: start: 20100610
  15. TYLENOL-500 [Concomitant]
     Route: 065
     Dates: start: 20100610
  16. BICARB [Concomitant]
     Route: 065
     Dates: start: 20110612
  17. REVLIMID [Suspect]
     Indication: MULTIPLE MYELOMA
     Route: 048
  18. LOTREL [Concomitant]
     Route: 065
  19. ULTRAM [Concomitant]
     Route: 065
  20. ALLOPURINOL [Concomitant]
     Route: 065
  21. M.V.I. [Concomitant]
     Route: 065
  22. PLASMA [Concomitant]
     Dosage: 2 UNITS
     Route: 051
  23. DEXAMETHASONE [Suspect]
     Indication: MULTIPLE MYELOMA
     Route: 065
  24. ASPIRIN [Concomitant]
     Route: 065
  25. DOXEPIN [Concomitant]
     Route: 065
  26. HEMOCYTE [Concomitant]
     Route: 065
  27. TRICOR [Concomitant]
     Route: 065
  28. PROTON PUMP INHIBITOR [Concomitant]
     Indication: PROPHYLAXIS
     Route: 065
     Dates: start: 20100610
  29. ALBUMIN (HUMAN) [Concomitant]
     Route: 065
     Dates: start: 20110612

REACTIONS (3)
  - DYSPNOEA [None]
  - ASTHENIA [None]
  - FEBRILE NEUTROPENIA [None]
